FAERS Safety Report 25348389 (Version 3)
Quarter: 2025Q2

REPORT INFORMATION
  Report Type: Report from Study
  Country: US (occurrence: US)
  Receive Date: 20250522
  Receipt Date: 20250605
  Transmission Date: 20250717
  Serious: Yes (Hospitalization, Other)
  Sender: INCYTE
  Company Number: US-EVENT-002693

PATIENT
  Age: 92 Year
  Weight: 61.315 kg

DRUGS (1)
  1. JAKAFI [Suspect]
     Active Substance: RUXOLITINIB
     Indication: Polycythaemia vera
     Dosage: 10 MILLIGRAM, BID

REACTIONS (8)
  - Pulmonary oedema [Unknown]
  - Oesophageal compression [Unknown]
  - Cardiac ventricular disorder [Unknown]
  - Cough [Unknown]
  - Pulmonary mass [Unknown]
  - Oedema peripheral [Unknown]
  - Stomatitis [Recovered/Resolved]
  - Product dose omission issue [Unknown]
